FAERS Safety Report 9510596 (Version 2)
Quarter: 2013Q3

REPORT INFORMATION
  Report Type: Spontaneous
  Country: AU (occurrence: AU)
  Receive Date: 20130909
  Receipt Date: 20130923
  Transmission Date: 20140515
  Serious: Yes (Life-Threatening, Other)
  Sender: FDA-Public Use
  Company Number: AU-PFIZER INC-2013257414

PATIENT
  Age: 68 Year
  Sex: 0

DRUGS (6)
  1. PHENYTOIN SODIUM [Suspect]
     Dosage: 1 G, ONE TIME
     Route: 042
     Dates: start: 20130208, end: 20130208
  2. ADALIMUMAB [Concomitant]
  3. ACETYLSALICYLIC ACID [Concomitant]
  4. FOLIC ACID [Concomitant]
  5. METHOTREXATE [Concomitant]
  6. SOTALOL HYDROCHLORIDE [Concomitant]
     Dosage: 80 MG, 1X/DAY

REACTIONS (2)
  - Cardiac arrest [Recovered/Resolved]
  - Bradycardia [Recovered/Resolved]
